FAERS Safety Report 8436997-2 (Version None)
Quarter: 2012Q2

REPORT INFORMATION
  Report Type: 
  Country: None (occurrence: None)
  Receive Date: 20120611
  Receipt Date: 20120611
  Transmission Date: 20120825
  Serious: Yes (Hospitalization, Disabling)
  Sender: FDA-Public Use
  Company Number: None

PATIENT
  Age: 44 Year
  Sex: Female
  Weight: 58.9676 kg

DRUGS (1)
  1. PROZAC [Suspect]
     Indication: DEPRESSION

REACTIONS (21)
  - PYREXIA [None]
  - RESTLESSNESS [None]
  - NAUSEA [None]
  - NIGHTMARE [None]
  - WITHDRAWAL SYNDROME [None]
  - SUICIDAL IDEATION [None]
  - SPINAL DISORDER [None]
  - HYPERAESTHESIA [None]
  - FEELING OF BODY TEMPERATURE CHANGE [None]
  - BURNING SENSATION [None]
  - CHOLECYSTECTOMY [None]
  - AGITATION [None]
  - LACRIMATION INCREASED [None]
  - DEPRESSION [None]
  - MYALGIA [None]
  - MANIA [None]
  - ABDOMINAL PAIN UPPER [None]
  - ANXIETY [None]
  - UTERINE DISORDER [None]
  - INSOMNIA [None]
  - MOOD ALTERED [None]
